FAERS Safety Report 9109058 (Version 1)
Quarter: 2013Q1

REPORT INFORMATION
  Report Type: Spontaneous
  Country: US (occurrence: US)
  Receive Date: 20130222
  Receipt Date: 20130222
  Transmission Date: 20140127
  Serious: Yes (Other)
  Sender: FDA-Public Use
  Company Number: US-JNJFOC-20130205323

PATIENT
  Sex: Male

DRUGS (3)
  1. INVEGA [Suspect]
     Indication: BIPOLAR I DISORDER
     Route: 048
     Dates: start: 2012
  2. TOPAMAX [Suspect]
     Indication: METABOLIC DISORDER
     Route: 048
     Dates: start: 2012, end: 2012
  3. LITHIUM [Concomitant]
     Indication: BIPOLAR DISORDER
     Route: 048
     Dates: start: 2011

REACTIONS (4)
  - Weight increased [Recovering/Resolving]
  - Blood testosterone decreased [Not Recovered/Not Resolved]
  - Hypometabolism [Not Recovered/Not Resolved]
  - Sedation [Unknown]
